FAERS Safety Report 24566903 (Version 1)
Quarter: 2024Q4

REPORT INFORMATION
  Report Type: Report from Study
  Country: US (occurrence: US)
  Receive Date: 20241030
  Receipt Date: 20241030
  Transmission Date: 20250114
  Serious: Yes (Other)
  Sender: VIFOR (INTERNATIONAL) INC.
  Company Number: US-Vifor (International) Inc.-VIT-2024-09914

PATIENT
  Age: 68 Year
  Sex: Female

DRUGS (1)
  1. VELTASSA [Suspect]
     Active Substance: PATIROMER
     Indication: Hyperkalaemia
     Dates: end: 20241007

REACTIONS (3)
  - Renal transplant [Unknown]
  - Blood potassium increased [Unknown]
  - Product use issue [Unknown]

NARRATIVE: CASE EVENT DATE: 20241008
